FAERS Safety Report 15088044 (Version 2)
Quarter: 2018Q3

REPORT INFORMATION
  Report Type: Spontaneous
  Country: FR (occurrence: FR)
  Receive Date: 20180629
  Receipt Date: 20180716
  Transmission Date: 20181010
  Serious: Yes (Disabling)
  Sender: FDA-Public Use
  Company Number: FR-TEVA-2018-FR-916405

PATIENT
  Age: 55 Year
  Sex: Female
  Weight: 105 kg

DRUGS (1)
  1. CISPLATINE ACCORD 1 MG/ML [Suspect]
     Active Substance: CISPLATIN
     Indication: PRODUCT USED FOR UNKNOWN INDICATION
     Route: 042
     Dates: start: 20180305, end: 20180319

REACTIONS (2)
  - Tinnitus [Not Recovered/Not Resolved]
  - Presbyacusis [Not Recovered/Not Resolved]

NARRATIVE: CASE EVENT DATE: 20180322
